FAERS Safety Report 4452974-0 (Version None)
Quarter: 2004Q3

REPORT INFORMATION
  Report Type: 
  Country: None (occurrence: None)
  Receive Date: 20040916
  Receipt Date: 20040907
  Transmission Date: 20050211
  Serious: Yes (Hospitalization)
  Sender: FDA-Public Use
  Company Number: 2004062711

PATIENT
  Age: 49 Year
  Sex: Female

DRUGS (1)
  1. ZIPRASIDONE [Suspect]
     Indication: SCHIZOPHRENIA
     Dosage: 160 MG (160 MG, 1 IN 1 D), ORAL
     Route: 048

REACTIONS (2)
  - PALPITATIONS [None]
  - TREATMENT NONCOMPLIANCE [None]
